FAERS Safety Report 17596836 (Version 1)
Quarter: 2020Q1

REPORT INFORMATION
  Report Type: Spontaneous
  Country: US (occurrence: US)
  Receive Date: 20200330
  Receipt Date: 20200330
  Transmission Date: 20200409
  Serious: Yes (Other)
  Sender: FDA-Public Use
  Company Number: US-PFIZER INC-2020124819

PATIENT
  Age: 88 Year
  Sex: Male

DRUGS (1)
  1. TAFAMIDIS MEGLUMINE [Suspect]
     Active Substance: TAFAMIDIS MEGLUMINE
     Indication: FAMILIAL AMYLOIDOSIS
     Dosage: 80 MG, UNK
     Dates: start: 20191218

REACTIONS (6)
  - Pain [Unknown]
  - Osteoarthritis [Unknown]
  - Anxiety [Unknown]
  - Fatigue [Unknown]
  - Cardiac failure congestive [Unknown]
  - Vitamin D deficiency [Unknown]
